FAERS Safety Report 9655987 (Version 1)
Quarter: 2013Q4

REPORT INFORMATION
  Report Type: Spontaneous
  Country: US (occurrence: None)
  Receive Date: 20131029
  Receipt Date: 20131029
  Transmission Date: 20140711
  Serious: Yes (Disabling, Other)
  Sender: FDA-Public Use
  Company Number: None

PATIENT
  Age: 11 Year
  Sex: Male
  Weight: 34.02 kg

DRUGS (1)
  1. MONTELUKAST SODIUM [Suspect]
     Indication: ASTHMA
     Dosage: 1 PILL
     Route: 048
     Dates: start: 20130601, end: 20131028

REACTIONS (6)
  - Abnormal behaviour [None]
  - Mental disorder [None]
  - Drug dose omission [None]
  - Fear [None]
  - Drug withdrawal syndrome [None]
  - Fatigue [None]
